FAERS Safety Report 16961800 (Version 1)
Quarter: 2019Q4

REPORT INFORMATION
  Report Type: Report from Study
  Country: US (occurrence: US)
  Receive Date: 20191025
  Receipt Date: 20191025
  Transmission Date: 20200122
  Serious: Yes (Disabling, Other)
  Sender: FDA-Public Use
  Company Number: US-BRISTOL-MYERS SQUIBB COMPANY-BMS-2019-101515

PATIENT
  Age: 29 Year
  Sex: Male
  Weight: 67.5 kg

DRUGS (4)
  1. VINBLASTINE SULFATE. [Suspect]
     Active Substance: VINBLASTINE SULFATE
     Indication: HODGKIN^S DISEASE
     Dosage: 22 MILLIGRAM
     Route: 065
     Dates: start: 20190903
  2. DOXORUBICIN HYDROCHLORIDE. [Suspect]
     Active Substance: DOXORUBICIN HYDROCHLORIDE
     Indication: HODGKIN^S DISEASE
     Dosage: 92.4 MILLIGRAM
     Route: 065
     Dates: start: 20190903
  3. DACARBAZINE. [Suspect]
     Active Substance: DACARBAZINE
     Indication: HODGKIN^S DISEASE
     Dosage: 1380 MILLIGRAM
     Route: 065
     Dates: start: 20190903
  4. NIVOLUMAB [Suspect]
     Active Substance: NIVOLUMAB
     Indication: HODGKIN^S DISEASE
     Dosage: 240 MILLIGRAM
     Route: 065
     Dates: start: 20190903

REACTIONS (2)
  - Uveitis [Recovering/Resolving]
  - Retinitis [Recovering/Resolving]

NARRATIVE: CASE EVENT DATE: 20191002
